FAERS Safety Report 6442602-7 (Version None)
Quarter: 2009Q4

REPORT INFORMATION
  Report Type: 
  Country: None (occurrence: None)
  Receive Date: 20091117
  Receipt Date: 20091109
  Transmission Date: 20100525
  Serious: Yes (Other)
  Sender: FDA-Public Use
  Company Number: US-JNJFOC-20090904014

PATIENT
  Sex: Male
  Weight: 68.49 kg

DRUGS (5)
  1. FENTANYL CITRATE [Suspect]
     Indication: ABDOMINAL PAIN UPPER
     Route: 062
     Dates: start: 20090701, end: 20090908
  2. FENTANYL-100 [Suspect]
     Indication: ABDOMINAL PAIN UPPER
     Route: 062
  3. FENTANYL-100 [Suspect]
     Indication: ABDOMINAL PAIN UPPER
  4. XANAX [Concomitant]
     Indication: ANXIETY
     Route: 048
  5. TRAZODONE HCL [Concomitant]
     Indication: SLEEP DISORDER
     Dosage: EACH NIGHT
     Route: 048

REACTIONS (6)
  - DIABETES MELLITUS [None]
  - FEELING ABNORMAL [None]
  - INAPPROPRIATE SCHEDULE OF DRUG ADMINISTRATION [None]
  - MALAISE [None]
  - THROAT TIGHTNESS [None]
  - TREATMENT NONCOMPLIANCE [None]
